FAERS Safety Report 26052537 (Version 1)
Quarter: 2025Q4

REPORT INFORMATION
  Report Type: Spontaneous
  Country: US (occurrence: None)
  Receive Date: 20251117
  Receipt Date: 20251117
  Transmission Date: 20260117
  Serious: Yes (Life-Threatening, Hospitalization, Other)
  Sender: AUROBINDO
  Company Number: US-MLMSERVICE-20251029-PI692038-00306-1

PATIENT
  Age: 4 Year
  Sex: Male

DRUGS (3)
  1. NICARDIPINE [Interacting]
     Active Substance: NICARDIPINE
     Indication: Hypertension
     Dosage: CONTINUOUS INTRAVENOUS NICARDIPINE (CIVN) ADDED ON POD 11
  2. TACROLIMUS [Interacting]
     Active Substance: TACROLIMUS
     Indication: Immunosuppressant drug therapy
     Dosage: INITIATED ON POST-OPERATIVE DAY (POD) 1
     Route: 065
  3. TACROLIMUS [Interacting]
     Active Substance: TACROLIMUS
     Dosage: 1.8 MILLIGRAM, TWO TIMES A DAY
     Route: 065

REACTIONS (5)
  - Respiratory failure [Recovering/Resolving]
  - Toxicity to various agents [Recovered/Resolved]
  - Drug interaction [Recovered/Resolved]
  - Acute kidney injury [Recovered/Resolved]
  - Anuria [Recovered/Resolved]
